FAERS Safety Report 9077112 (Version 1)
Quarter: 2013Q1

REPORT INFORMATION
  Report Type: Report from Study
  Country: US (occurrence: US)
  Receive Date: 20130129
  Receipt Date: 20130129
  Transmission Date: 20140127
  Serious: No
  Sender: FDA-Public Use
  Company Number: US-ABBOTT-12P-163-0948248-00

PATIENT
  Age: 49 Year
  Sex: Female

DRUGS (6)
  1. HUMIRA 40 MG/0.8 ML PEN [Suspect]
     Indication: CROHN^S DISEASE
     Dates: start: 20111025
  2. WELLBUTRIN [Concomitant]
     Indication: DEPRESSION
     Dosage: 300MG DAILY
  3. LEXAPRO [Concomitant]
     Indication: DEPRESSION
     Dosage: 20MG DAILY
  4. TRAZADONE [Concomitant]
     Indication: DEPRESSION
     Dosage: AT BEDTIME
  5. OMEPRAZOLE [Concomitant]
     Indication: DYSPEPSIA
  6. NARATRIPTAN [Concomitant]
     Indication: MIGRAINE
     Dosage: ON ONSET OF MIGRAINE, NOT TO EXCEED 2 PILLS IN 24 HOURS

REACTIONS (1)
  - Weight increased [Not Recovered/Not Resolved]
